FAERS Safety Report 12244101 (Version 4)
Quarter: 2016Q2

REPORT INFORMATION
  Report Type: Report from Study
  Country: US (occurrence: US)
  Receive Date: 20160406
  Receipt Date: 20160630
  Transmission Date: 20160815
  Serious: Yes (Hospitalization, Other)
  Sender: FDA-Public Use
  Company Number: US-AMGEN-USASL2016027207

PATIENT
  Age: 68 Year
  Sex: Female

DRUGS (5)
  1. FUROSEMIDE. [Concomitant]
     Active Substance: FUROSEMIDE
     Indication: HERPES ZOSTER
  2. KYPROLIS [Suspect]
     Active Substance: CARFILZOMIB
     Indication: PLASMA CELL MYELOMA
     Dosage: UNK UNK, 2 TIMES/WK, COUPLE OF MONTH
     Route: 065
  3. OXYCODONE [Concomitant]
     Active Substance: OXYCODONE
  4. ASA [Concomitant]
     Active Substance: ASPIRIN
     Dosage: 81 MG, UNK
  5. POMALYST [Concomitant]
     Active Substance: POMALIDOMIDE
     Dosage: RECEIVED 21 DAYS, THEN OFF 7 DAYS

REACTIONS (19)
  - Mass [Unknown]
  - Arthralgia [Unknown]
  - Pneumonia [Recovered/Resolved]
  - Joint swelling [Unknown]
  - White blood cell count decreased [Unknown]
  - Cough [Unknown]
  - Pain in extremity [Unknown]
  - Tibia fracture [Recovering/Resolving]
  - Mobility decreased [Unknown]
  - Fluid retention [Unknown]
  - Fatigue [Unknown]
  - Hypersensitivity [Unknown]
  - Femur fracture [Unknown]
  - Pain [Unknown]
  - Peripheral swelling [Unknown]
  - Fall [Unknown]
  - White blood cell count abnormal [Unknown]
  - Laboratory test abnormal [Unknown]
  - Feeling cold [Unknown]

NARRATIVE: CASE EVENT DATE: 201603
